FAERS Safety Report 9790775 (Version 3)
Quarter: 2014Q2

REPORT INFORMATION
  Report Type: Report from Study
  Country: US (occurrence: US)
  Receive Date: 20131231
  Receipt Date: 20140411
  Transmission Date: 20141212
  Serious: Yes (Death, Other)
  Sender: FDA-Public Use
  Company Number: US-ABBVIE-13P-163-1183576-00

PATIENT
  Age: 78 None
  Sex: Female

DRUGS (2)
  1. HUMIRA [Suspect]
     Indication: RHEUMATOID ARTHRITIS
  2. INSULIN [Concomitant]
     Indication: DIABETES MELLITUS

REACTIONS (7)
  - Cardio-respiratory arrest [Fatal]
  - Myocardial infarction [Fatal]
  - Renal failure [Fatal]
  - Cardiac disorder [Fatal]
  - Lung disorder [Fatal]
  - Urosepsis [Unknown]
  - Tooth infection [Unknown]
